FAERS Safety Report 7748408-0 (Version None)
Quarter: 2011Q3

REPORT INFORMATION
  Report Type: 
  Country: None (occurrence: None)
  Receive Date: 20110913
  Receipt Date: 20110906
  Transmission Date: 20111222
  Serious: Yes (Other)
  Sender: FDA-Public Use
  Company Number: ES-BRISTOL-MYERS SQUIBB COMPANY-16046518

PATIENT
  Age: 38 Year
  Sex: Male

DRUGS (3)
  1. ABILIFY [Suspect]
     Indication: DEPENDENT PERSONALITY DISORDER
     Dosage: JUN11-12JUL11,10MG TABS;NOV10;MONTH
     Route: 048
     Dates: start: 20110601
  2. SEROQUEL [Concomitant]
     Indication: DEPENDENT PERSONALITY DISORDER
     Dosage: NO OF SEPERATE DOSAGES: 1,FILM COATED TABS
     Route: 048
     Dates: start: 20101101
  3. ESCITALOPRAM [Concomitant]
     Indication: DEPENDENT PERSONALITY DISORDER
     Dosage: NO OF SEPERATE DOSAGES 1
     Route: 048
     Dates: start: 20101101, end: 20110601

REACTIONS (1)
  - HEPATOTOXICITY [None]
